FAERS Safety Report 14275751 (Version 3)
Quarter: 2018Q4

REPORT INFORMATION
  Report Type: Spontaneous
  Country: US (occurrence: US)
  Receive Date: 20171211
  Receipt Date: 20181212
  Transmission Date: 20190204
  Serious: Yes (Other)
  Sender: FDA-Public Use
  Company Number: US-OTSUKA-2017_018772

PATIENT
  Age: 22 Year
  Sex: Male
  Weight: 92.97 kg

DRUGS (1)
  1. ABILIFY [Suspect]
     Active Substance: ARIPIPRAZOLE
     Indication: BIPOLAR DISORDER
     Dosage: 15 MG, QD
     Route: 065
     Dates: start: 2013, end: 2013

REACTIONS (23)
  - Sinus congestion [Unknown]
  - Obsessive-compulsive disorder [Not Recovered/Not Resolved]
  - Abdominal pain [Unknown]
  - Depressed mood [Unknown]
  - Rash [Unknown]
  - Brain injury [Unknown]
  - Shoplifting [Not Recovered/Not Resolved]
  - Hiccups [Unknown]
  - Abnormal behaviour [Unknown]
  - Theft [Not Recovered/Not Resolved]
  - Gastrooesophageal reflux disease [Unknown]
  - Somnolence [Unknown]
  - Gambling disorder [Recovered/Resolved]
  - Back pain [Unknown]
  - Loss of employment [Unknown]
  - Blood pressure systolic increased [Unknown]
  - Neck pain [Unknown]
  - Compulsive shopping [Not Recovered/Not Resolved]
  - Aggression [Unknown]
  - Insomnia [Unknown]
  - Economic problem [Unknown]
  - Bankruptcy [Unknown]
  - Weight increased [Unknown]

NARRATIVE: CASE EVENT DATE: 2013
